FAERS Safety Report 24335495 (Version 5)
Quarter: 2024Q4

REPORT INFORMATION
  Report Type: Report from Study
  Country: AT (occurrence: AT)
  Receive Date: 20240919
  Receipt Date: 20241003
  Transmission Date: 20250115
  Serious: Yes (Death, Hospitalization, Other)
  Sender: ABBVIE
  Company Number: AT-ABBVIE-5499045

PATIENT
  Age: 82 Year
  Sex: Male
  Weight: 78 kg

DRUGS (125)
  1. VENETOCLAX [Suspect]
     Active Substance: VENETOCLAX
     Indication: Acute myeloid leukaemia
     Route: 048
     Dates: start: 2023, end: 2023
  2. VENETOCLAX [Suspect]
     Active Substance: VENETOCLAX
     Indication: Acute myeloid leukaemia
     Route: 048
     Dates: start: 20231127, end: 20231224
  3. VENETOCLAX [Suspect]
     Active Substance: VENETOCLAX
     Indication: Acute myeloid leukaemia
     Dosage: HEMATOLOGIC AE / SA
     Route: 048
     Dates: start: 20240222, end: 20240320
  4. VENETOCLAX [Suspect]
     Active Substance: VENETOCLAX
     Indication: Acute myeloid leukaemia
     Route: 048
     Dates: start: 20240321, end: 20240417
  5. VENETOCLAX [Suspect]
     Active Substance: VENETOCLAX
     Indication: Acute myeloid leukaemia
     Dosage: 400 MILLIGRAM
     Route: 048
     Dates: start: 20230909, end: 20230909
  6. VENETOCLAX [Suspect]
     Active Substance: VENETOCLAX
     Indication: Acute myeloid leukaemia
     Route: 048
     Dates: start: 20240125, end: 20240221
  7. VENETOCLAX [Suspect]
     Active Substance: VENETOCLAX
     Indication: Acute myeloid leukaemia
     Dosage: HEMATOLOGIC AE/SAE
     Route: 048
     Dates: start: 20230907, end: 20230907
  8. VENETOCLAX [Suspect]
     Active Substance: VENETOCLAX
     Indication: Acute myeloid leukaemia
     Dosage: 0 MG?FREQUENCY TEXT: HEMATOLOGIC AE/SAE
     Route: 048
     Dates: start: 20240516, end: 20240522
  9. VENETOCLAX [Suspect]
     Active Substance: VENETOCLAX
     Indication: Acute myeloid leukaemia
     Dosage: 400 MILLIGRAM
     Route: 048
     Dates: start: 20230910, end: 20230926
  10. VENETOCLAX [Suspect]
     Active Substance: VENETOCLAX
     Indication: Acute myeloid leukaemia
     Dosage: 0 MILLIGRAM?FREQUENCY TEXT: HEMATOLOGIC AE/SAE
     Route: 048
     Dates: start: 20240620, end: 20240623
  11. VENETOCLAX [Suspect]
     Active Substance: VENETOCLAX
     Indication: Acute myeloid leukaemia
     Dosage: FREQUENCY TEXT: HEMATOLOGIC AE/SAE
     Route: 048
     Dates: start: 20240624, end: 20240707
  12. VENETOCLAX [Suspect]
     Active Substance: VENETOCLAX
     Indication: Acute myeloid leukaemia
     Dosage: 200 MILLIGRAM
     Route: 048
     Dates: start: 20230908, end: 20230908
  13. VENETOCLAX [Suspect]
     Active Substance: VENETOCLAX
     Indication: Acute myeloid leukaemia
     Route: 048
     Dates: start: 20230927, end: 20231019
  14. VENETOCLAX [Suspect]
     Active Substance: VENETOCLAX
     Indication: Acute myeloid leukaemia
     Dosage: 200 MILLIGRAM
     Route: 048
     Dates: start: 20231020, end: 20231116
  15. VENETOCLAX [Suspect]
     Active Substance: VENETOCLAX
     Indication: Acute myeloid leukaemia
     Dosage: FREQUENCY TEXT: HEMATOLOGIC AE/SAE
     Route: 048
     Dates: start: 20240418, end: 20240515
  16. VENETOCLAX [Suspect]
     Active Substance: VENETOCLAX
     Indication: Acute myeloid leukaemia
     Dosage: FREQUENCY TEXT: HEMATOLOGIC AE/SAE
     Route: 048
     Dates: start: 20240523, end: 20240605
  17. VENETOCLAX [Suspect]
     Active Substance: VENETOCLAX
     Indication: Acute myeloid leukaemia
     Dosage: 0 MILLIGRAM?FREQUENCY TEXT: HEMATOLOGIC AE/SAE
     Route: 048
     Dates: start: 20240606, end: 20240619
  18. VENETOCLAX [Suspect]
     Active Substance: VENETOCLAX
     Indication: Acute myeloid leukaemia
     Dosage: 0 MILLIGRAM
     Route: 048
     Dates: start: 20240708, end: 20240721
  19. VENETOCLAX [Suspect]
     Active Substance: VENETOCLAX
     Indication: Acute myeloid leukaemia
     Dosage: 0 MG
     Route: 048
     Dates: start: 20240722, end: 20240804
  20. VENETOCLAX [Suspect]
     Active Substance: VENETOCLAX
     Indication: Acute myeloid leukaemia
     Dosage: 0 MG
     Route: 048
     Dates: start: 20240805, end: 20240818
  21. VIDAZA [Concomitant]
     Active Substance: AZACITIDINE
     Indication: Chronic lymphocytic leukaemia
     Dosage: STANDARD DOSING
     Dates: start: 20231228, end: 20231229
  22. VIDAZA [Concomitant]
     Active Substance: AZACITIDINE
     Indication: Chronic lymphocytic leukaemia
     Dosage: STANDARD DOSING
     Dates: start: 20240226, end: 20240228
  23. VIDAZA [Concomitant]
     Active Substance: AZACITIDINE
     Indication: Chronic lymphocytic leukaemia
     Dosage: STANDARD DOSING
     Dates: start: 20231127, end: 20231201
  24. VIDAZA [Concomitant]
     Active Substance: AZACITIDINE
     Indication: Chronic lymphocytic leukaemia
     Dosage: STANDARD DOSING
     Dates: start: 20240222, end: 20240223
  25. VIDAZA [Concomitant]
     Active Substance: AZACITIDINE
     Indication: Chronic lymphocytic leukaemia
     Dosage: STANDARD DOSING
     Dates: start: 20240129, end: 20240131
  26. VIDAZA [Concomitant]
     Active Substance: AZACITIDINE
     Indication: Chronic lymphocytic leukaemia
     Dates: start: 20240125, end: 20240126
  27. VIDAZA [Concomitant]
     Active Substance: AZACITIDINE
     Indication: Chronic lymphocytic leukaemia
     Dosage: FREQUENCY TEXT: STANDARD DOSING
     Dates: start: 20240325, end: 20240327
  28. VIDAZA [Concomitant]
     Active Substance: AZACITIDINE
     Indication: Chronic lymphocytic leukaemia
     Dates: start: 20240321, end: 20240322
  29. VIDAZA [Concomitant]
     Active Substance: AZACITIDINE
     Indication: Chronic lymphocytic leukaemia
     Dosage: STANDARD DOSE
     Dates: start: 20240101, end: 20240103
  30. VIDAZA [Concomitant]
     Active Substance: AZACITIDINE
     Indication: Chronic lymphocytic leukaemia
     Dosage: FREQUENCY TEXT: STANDARD DOSING
     Dates: start: 20240422, end: 20240424
  31. VIDAZA [Concomitant]
     Active Substance: AZACITIDINE
     Indication: Chronic lymphocytic leukaemia
     Dosage: FREQUENCY TEXT: STANDARD DOSING
     Dates: start: 20240418, end: 20240419
  32. VIDAZA [Concomitant]
     Active Substance: AZACITIDINE
     Indication: Chronic lymphocytic leukaemia
     Dosage: 145 MILLIGRAM?STANDARD DOSING
     Dates: start: 20231020, end: 20231024
  33. VIDAZA [Concomitant]
     Active Substance: AZACITIDINE
     Indication: Chronic lymphocytic leukaemia
     Dosage: FREQUENCY TEXT: STANDARD DOSING
     Dates: start: 20240624, end: 20240628
  34. VIDAZA [Concomitant]
     Active Substance: AZACITIDINE
     Indication: Chronic lymphocytic leukaemia
     Dosage: 145 MILLIGRAM?STANDARD DOSING
     Dates: start: 20230907, end: 20230913
  35. VIDAZA [Concomitant]
     Active Substance: AZACITIDINE
     Indication: Chronic lymphocytic leukaemia
     Dosage: FREQUENCY TEXT: STANDARD DOSING
     Dates: start: 20240527, end: 20240529
  36. VIDAZA [Concomitant]
     Active Substance: AZACITIDINE
     Indication: Chronic lymphocytic leukaemia
     Dosage: FREQUENCY TEXT: STANDARD DOSING
     Dates: start: 20240523, end: 20240524
  37. VIDAZA [Concomitant]
     Active Substance: AZACITIDINE
     Indication: Chronic lymphocytic leukaemia
     Dosage: 143.95 MG?FREQUENCY TEXT: STANDARD DOSING
     Dates: start: 20240722, end: 20240726
  38. Dulcoclax [Concomitant]
     Indication: Product used for unknown indication
     Route: 048
     Dates: start: 20240908, end: 20240908
  39. TAMSULOSIN HYDROCHLORIDE [Concomitant]
     Active Substance: TAMSULOSIN HYDROCHLORIDE
     Indication: Benign prostatic hyperplasia
     Route: 048
     Dates: end: 20240915
  40. G CSFPCGEN [Concomitant]
     Indication: Supportive care
     Dates: start: 20240914, end: 20240914
  41. G CSFPCGEN [Concomitant]
     Indication: Supportive care
     Dosage: FREQUENCY TEXT: OTHER,?0.5 MG
     Dates: start: 20231120, end: 20231123
  42. G CSFPCGEN [Concomitant]
     Indication: Supportive care
     Dates: start: 20240910, end: 20240912
  43. G CSFPCGEN [Concomitant]
     Indication: Supportive care
     Dosage: FREQUENCY TEXT: OTHER,?0.5 MG
     Dates: start: 20231002, end: 20231020
  44. G CSFPCGEN [Concomitant]
     Indication: Supportive care
     Dosage: 0.5 MG,?FREQUENCY TEXT: OTHER
     Dates: start: 20240813, end: 20240907
  45. G CSFPCGEN [Concomitant]
     Indication: Supportive care
     Dosage: 0.5 MG
     Dates: start: 20231128, end: 20240812
  46. G CSFPCGEN [Concomitant]
     Indication: Supportive care
     Dates: start: 20240908, end: 20240908
  47. G CSFPCGEN [Concomitant]
     Indication: Supportive care
     Dosage: 0.5 MG,?FREQUENCY TEXT: OTHER?FIRST ADMIN DATE: 2024
  48. AMOXICILLIN\CLAVULANATE POTASSIUM [Concomitant]
     Active Substance: AMOXICILLIN\CLAVULANATE POTASSIUM
     Indication: Antibiotic therapy
     Dosage: 875/125MG
     Route: 048
     Dates: start: 20231003
  49. AUGMENTIN [Concomitant]
     Active Substance: AMOXICILLIN\CLAVULANATE POTASSIUM
     Indication: Antibiotic therapy
     Dosage: 875/125MG
     Route: 048
     Dates: start: 20230914, end: 20230927
  50. ELOMEL [Concomitant]
     Indication: Product used for unknown indication
     Route: 042
     Dates: start: 20240907, end: 20240907
  51. ELOMEL [Concomitant]
     Indication: Product used for unknown indication
     Route: 042
     Dates: start: 20240908, end: 20240914
  52. LOVENOX [Concomitant]
     Active Substance: ENOXAPARIN SODIUM
     Indication: Thrombosis prophylaxis
     Route: 058
     Dates: start: 20230930, end: 20231002
  53. ESCITALOPRAM [Concomitant]
     Active Substance: ESCITALOPRAM OXALATE
     Indication: Depression
     Route: 048
     Dates: start: 20230904, end: 20240915
  54. ESCITALOPRAM [Concomitant]
     Active Substance: ESCITALOPRAM OXALATE
     Indication: Depression
     Route: 048
     Dates: start: 20240904, end: 20240908
  55. ESCITALOPRAM [Concomitant]
     Active Substance: ESCITALOPRAM OXALATE
     Indication: Depression
     Route: 048
     Dates: start: 20240909, end: 20240915
  56. PROSCAR [Concomitant]
     Active Substance: FINASTERIDE
     Indication: Benign prostatic hyperplasia
     Dosage: TIME INTERVAL: 0.33333333 WEEKS: FREQUENCY TEXT: 3 TIMES PER WEEK (MON, WED, FRI)
     Route: 048
     Dates: start: 20230831, end: 20240913
  57. ONDANSETRON [Concomitant]
     Active Substance: ONDANSETRON
     Indication: Nausea
     Dosage: TIME INTERVAL: AS NECESSARY: FREQUENCY TEXT: AS REQUIRED
     Dates: start: 20230907
  58. ONDANSETRON [Concomitant]
     Active Substance: ONDANSETRON
     Indication: Nausea
     Route: 048
     Dates: start: 20240722, end: 20240726
  59. ONDANSETRON [Concomitant]
     Active Substance: ONDANSETRON
     Indication: Nausea
     Dosage: FIRST ADMIN DATE 2024
     Route: 048
  60. CHOLECALCIFEROL [Concomitant]
     Active Substance: CHOLECALCIFEROL
     Indication: Supportive care
     Dosage: FREQUENCY TEXT: WEEKLY (FRIDAYS)
     Route: 048
     Dates: start: 20230901, end: 20240915
  61. MYCOSTATIN [Concomitant]
     Active Substance: NYSTATIN
     Indication: Fungal infection
     Route: 048
     Dates: start: 20230831, end: 20230926
  62. MYCOSTATIN [Concomitant]
     Active Substance: NYSTATIN
     Indication: Fungal infection
     Route: 048
     Dates: start: 20230928, end: 20231002
  63. MYCOSTATIN [Concomitant]
     Active Substance: NYSTATIN
     Indication: Fungal infection
     Route: 048
     Dates: start: 20240907, end: 20240915
  64. ACETAMINOPHEN [Concomitant]
     Active Substance: ACETAMINOPHEN
     Indication: Pain management
     Dosage: TIME INTERVAL: AS NECESSARY
     Route: 048
     Dates: start: 20230904, end: 20240915
  65. GINKGO [Concomitant]
     Active Substance: GINKGO
     Indication: Cognitive disorder
     Dosage: ONCE DAILY IN THE MORNING
     Route: 048
     Dates: end: 20240909
  66. BROMAZEPAM [Concomitant]
     Active Substance: BROMAZEPAM
     Indication: Anxiety disorder
     Dosage: HALF IN THE EVENINGS
  67. BROMAZEPAM [Concomitant]
     Active Substance: BROMAZEPAM
     Indication: Anxiety disorder
     Dosage: FREQUENCY TEXT: IN CASE OF MASSIVE RESTLESSNESS,?0.5 MG
  68. BROMAZEPAM [Concomitant]
     Active Substance: BROMAZEPAM
     Indication: Anxiety disorder
     Dosage: FREQUENCY TEXT: 3MG IN THE EVENING
     Route: 048
     Dates: start: 20230830, end: 20240915
  69. DEXIBUPROFEN [Concomitant]
     Active Substance: DEXIBUPROFEN
     Indication: Analgesic therapy
     Route: 048
     Dates: start: 20230928
  70. Paspertin [Concomitant]
     Indication: Nausea
     Dosage: TIME INTERVAL: AS NECESSARY: FREQUENCY TEXT: AS REQUIRED?FREQUENCY TEXT: UP TO 3 TIMES A DAY
     Route: 048
     Dates: start: 20230907
  71. Paspertin [Concomitant]
     Indication: Nausea
     Dosage: TIME INTERVAL: AS NECESSARY: FREQUENCY TEXT: UP TO 3 TIMES A DAY?FREQUENCY TEXT: AS REQUIRED
     Route: 048
     Dates: start: 20240907, end: 20240912
  72. Paspertin [Concomitant]
     Indication: Nausea
     Dosage: TIME INTERVAL: AS NECESSARY: FREQUENCY TEXT: UP TO 3 TIMES A DAY?FREQUENCY TEXT: AS REQUIRED
     Route: 042
     Dates: start: 20240913, end: 20240915
  73. PERFALGAN [Concomitant]
     Active Substance: ACETAMINOPHEN
     Indication: Pyrexia
     Dosage: FREQUENCY TEXT: SINGLE ADMINISTRATION
     Route: 042
     Dates: start: 20240907, end: 20240907
  74. PANTOPRAZOLE SODIUM [Concomitant]
     Active Substance: PANTOPRAZOLE SODIUM
     Indication: Gastric ulcer
     Route: 048
     Dates: start: 20230911, end: 20240915
  75. CANDESARTAN [Concomitant]
     Active Substance: CANDESARTAN
     Indication: Hypertension
     Dosage: ONCE DAILY (IN THE AFTERNOON)
     Route: 048
     Dates: end: 20240915
  76. Novalgin [Concomitant]
     Indication: Analgesic therapy
     Dosage: FREQUENCY TEXT: SINGLE ADMINISTRATION
     Route: 042
     Dates: start: 20240913, end: 20240915
  77. Novalgin [Concomitant]
     Indication: Analgesic therapy
     Route: 048
     Dates: start: 20240907, end: 20240915
  78. Novalgin [Concomitant]
     Indication: Analgesic therapy
     Dates: start: 20240913, end: 20240913
  79. ALBUMIN TANNATE [Concomitant]
     Active Substance: ALBUMIN TANNATE
     Indication: Hypersensitivity
     Dosage: FREQUENCY TEXT: AS REQUIRED
     Route: 048
     Dates: start: 20230909, end: 20240915
  80. TAZOBACTAM [Concomitant]
     Active Substance: TAZOBACTAM
     Indication: Infection
     Dosage: TIME INTERVAL: 0.33333333 DAYS
     Route: 042
     Dates: start: 20230910, end: 20230913
  81. TAZOBACTAM [Concomitant]
     Active Substance: TAZOBACTAM
     Indication: Infection
     Dosage: TIME INTERVAL: 0.33333333 DAYS
     Route: 042
     Dates: start: 20230928, end: 20231002
  82. TAZOBACTAM [Concomitant]
     Active Substance: TAZOBACTAM
     Indication: Infection
     Dosage: 1-1-1-0 DAILY
     Route: 042
     Dates: start: 20240913, end: 20240914
  83. TAZOBACTAM [Concomitant]
     Active Substance: TAZOBACTAM
     Indication: Infection
     Route: 042
     Dates: start: 20240907, end: 20240908
  84. CEFTRIAXONE [Concomitant]
     Active Substance: CEFTRIAXONE
     Indication: Antibiotic therapy
     Dosage: FREQUENCY TEXT: SINGLE ADMINISTRATION
     Route: 042
     Dates: start: 20230909, end: 20230909
  85. ENOXAPARIN SODIUM [Concomitant]
     Active Substance: ENOXAPARIN SODIUM
     Indication: Thrombosis prophylaxis
     Route: 058
     Dates: start: 20230831, end: 20230908
  86. ERYTHROPOIETIN [Concomitant]
     Active Substance: ERYTHROPOIETIN
     Indication: Product used for unknown indication
     Dates: start: 20240624, end: 20240913
  87. HUMAN RED BLOOD CELL [Concomitant]
     Active Substance: HUMAN RED BLOOD CELL
     Indication: Neutropenia
     Dosage: DAILY
     Dates: start: 20230928, end: 20230928
  88. HUMAN RED BLOOD CELL [Concomitant]
     Active Substance: HUMAN RED BLOOD CELL
     Indication: Neutropenia
     Dosage: DAILY
     Dates: start: 20240723, end: 20240723
  89. HUMAN RED BLOOD CELL [Concomitant]
     Active Substance: HUMAN RED BLOOD CELL
     Indication: Neutropenia
     Dosage: DAILY
     Dates: start: 20230901, end: 20230901
  90. HUMAN RED BLOOD CELL [Concomitant]
     Active Substance: HUMAN RED BLOOD CELL
     Indication: Neutropenia
     Dosage: DAILY
     Dates: start: 20230908, end: 20230908
  91. HUMAN RED BLOOD CELL [Concomitant]
     Active Substance: HUMAN RED BLOOD CELL
     Indication: Neutropenia
     Dosage: DAILY
     Dates: start: 20240709, end: 20240709
  92. HUMAN RED BLOOD CELL [Concomitant]
     Active Substance: HUMAN RED BLOOD CELL
     Indication: Neutropenia
     Dosage: DAILY
     Dates: start: 20230918, end: 20230918
  93. HUMAN RED BLOOD CELL [Concomitant]
     Active Substance: HUMAN RED BLOOD CELL
     Indication: Neutropenia
     Dosage: DAILY
     Dates: start: 20240813, end: 20240813
  94. HUMAN RED BLOOD CELL [Concomitant]
     Active Substance: HUMAN RED BLOOD CELL
     Indication: Neutropenia
     Dosage: DAILY
     Dates: start: 20240816, end: 20240816
  95. HUMAN RED BLOOD CELL [Concomitant]
     Active Substance: HUMAN RED BLOOD CELL
     Indication: Neutropenia
     Dosage: DAILY
     Dates: start: 20240829, end: 20240829
  96. HUMAN RED BLOOD CELL [Concomitant]
     Active Substance: HUMAN RED BLOOD CELL
     Indication: Neutropenia
     Dates: start: 20240905, end: 20240905
  97. HUMAN RED BLOOD CELL [Concomitant]
     Active Substance: HUMAN RED BLOOD CELL
     Indication: Neutropenia
     Dates: start: 20240908, end: 20240908
  98. HUMAN RED BLOOD CELL [Concomitant]
     Active Substance: HUMAN RED BLOOD CELL
     Indication: Neutropenia
     Dates: start: 20240914, end: 20240914
  99. HUMAN RED BLOOD CELL [Concomitant]
     Active Substance: HUMAN RED BLOOD CELL
     Indication: Neutropenia
     Dates: start: 20240911, end: 20240911
  100. FILGRASTIM [Concomitant]
     Active Substance: FILGRASTIM
     Indication: Neutropenia
     Dosage: FREQUENCY TEXT: ONCE PER WEEK ON FRIDAY AND MONDAY
     Dates: start: 20240908
  101. HYDROXYCHLOROQUINE [Concomitant]
     Active Substance: HYDROXYCHLOROQUINE
     Indication: Chronic cutaneous lupus erythematosus
     Route: 048
     Dates: start: 20230428, end: 20230816
  102. LYNPARZA [Concomitant]
     Active Substance: OLAPARIB
     Indication: Ovarian cancer
  103. LYNPARZA [Concomitant]
     Active Substance: OLAPARIB
     Indication: Ovarian cancer
  104. GRANULOCYTE COLONY-STIMULATING FACTOR NOS [Concomitant]
     Active Substance: GRANULOCYTE COLONY-STIMULATING FACTOR NOS
     Indication: Neutropenia
     Dates: start: 20240910, end: 20240912
  105. GRANULOCYTE COLONY-STIMULATING FACTOR NOS [Concomitant]
     Active Substance: GRANULOCYTE COLONY-STIMULATING FACTOR NOS
     Indication: Neutropenia
  106. GRANULOCYTE COLONY-STIMULATING FACTOR NOS [Concomitant]
     Active Substance: GRANULOCYTE COLONY-STIMULATING FACTOR NOS
     Indication: Neutropenia
     Dates: start: 20240813, end: 20240907
  107. GRANULOCYTE COLONY-STIMULATING FACTOR NOS [Concomitant]
     Active Substance: GRANULOCYTE COLONY-STIMULATING FACTOR NOS
     Indication: Neutropenia
     Dates: start: 20240913, end: 20240914
  108. GRANULOCYTE COLONY-STIMULATING FACTOR NOS [Concomitant]
     Active Substance: GRANULOCYTE COLONY-STIMULATING FACTOR NOS
     Indication: Neutropenia
     Dates: start: 20240908, end: 20240908
  109. LEVOFLOXACIN [Concomitant]
     Active Substance: LEVOFLOXACIN
     Indication: Product used for unknown indication
     Route: 042
     Dates: start: 20240908, end: 20240914
  110. URAPIDIL [Concomitant]
     Active Substance: URAPIDIL
     Indication: Product used for unknown indication
     Dosage: PERFUSOR 2ML/H
     Route: 042
     Dates: start: 20240913, end: 20240915
  111. CLEVIPREX [Concomitant]
     Active Substance: CLEVIDIPINE
     Indication: Hypertension
     Dosage: PERFUSOR 2ML/H
     Route: 042
     Dates: start: 202409, end: 20240915
  112. CLEVIPREX [Concomitant]
     Active Substance: CLEVIDIPINE
     Indication: Hypertension
     Dosage: 0.5 MG?PERFUSOR
     Route: 042
     Dates: start: 20230913, end: 20230915
  113. ZOFRAN [Concomitant]
     Active Substance: ONDANSETRON HYDROCHLORIDE
     Indication: Product used for unknown indication
     Route: 042
     Dates: start: 20240913, end: 20240915
  114. AMLODIPINE BESYLATE [Concomitant]
     Active Substance: AMLODIPINE BESYLATE
     Indication: Hypertension
     Dosage: ONCE IN THE MORNING, ONCE EVENINGS
     Route: 048
     Dates: start: 20240914, end: 20240915
  115. AMLODIPINE BESYLATE [Concomitant]
     Active Substance: AMLODIPINE BESYLATE
     Indication: Hypertension
     Route: 048
     Dates: start: 20240910, end: 20240913
  116. AMLODIPINE BESYLATE [Concomitant]
     Active Substance: AMLODIPINE BESYLATE
     Indication: Hypertension
  117. PLATELETS [Concomitant]
     Active Substance: HUMAN PLATELET, ALLOGENIC
     Indication: Product used for unknown indication
     Dosage: FREQUENCY TEXT: DAILY??THROMBOCYTES CONCENTRATE
     Dates: start: 20240912, end: 20240913
  118. PLATELETS [Concomitant]
     Active Substance: HUMAN PLATELET, ALLOGENIC
     Indication: Product used for unknown indication
     Dosage: FREQUENCY TEXT: DAILY??THROMBOCYTES CONCENTRATE
     Dates: start: 20240907, end: 20240907
  119. PLATELETS [Concomitant]
     Active Substance: HUMAN PLATELET, ALLOGENIC
     Indication: Product used for unknown indication
     Dosage: FREQUENCY TEXT: DAILY??THROMBOCYTES CONCENTRATE
     Dates: start: 20240914, end: 20240914
  120. PLATELETS [Concomitant]
     Active Substance: HUMAN PLATELET, ALLOGENIC
     Indication: Product used for unknown indication
     Dosage: FREQUENCY TEXT: DAILY??THROMBOCYTES CONCENTRATE
     Dates: start: 20240909, end: 20240909
  121. PLATELETS [Concomitant]
     Active Substance: HUMAN PLATELET, ALLOGENIC
     Indication: Product used for unknown indication
     Dosage: FREQUENCY TEXT: DAILY??THROMBOCYTES CONCENTRATE
     Dates: start: 20240905, end: 20240905
  122. PLATELETS [Concomitant]
     Active Substance: HUMAN PLATELET, ALLOGENIC
     Indication: Product used for unknown indication
     Dosage: FREQUENCY TEXT: DAILY??THROMBOCYTES CONCENTRATE
     Dates: start: 20240910, end: 20240910
  123. PLATELETS [Concomitant]
     Active Substance: HUMAN PLATELET, ALLOGENIC
     Indication: Product used for unknown indication
     Dosage: THROMBOCYTE CONCENTRATE
     Dates: start: 20240829, end: 20240829
  124. ACETAMINOPHEN [Concomitant]
     Active Substance: ACETAMINOPHEN
     Indication: Pyrexia
     Route: 042
     Dates: start: 20240907, end: 20240915
  125. Olanib [Concomitant]
     Indication: Product used for unknown indication

REACTIONS (45)
  - Febrile neutropenia [Fatal]
  - General physical health deterioration [Unknown]
  - Febrile neutropenia [Recovered/Resolved]
  - Cardiac failure [Fatal]
  - Neutropenia [Recovered/Resolved]
  - Cerebral haemorrhage [Fatal]
  - Diarrhoea [Recovered/Resolved]
  - Neoplasm progression [Fatal]
  - Neutropenia [Recovered/Resolved]
  - Acute myeloid leukaemia [Fatal]
  - Neutropenia [Recovered/Resolved]
  - Neutropenia [Recovered/Resolved]
  - Neutropenia [Recovered/Resolved]
  - Neutropenia [Recovered/Resolved]
  - Neutropenia [Recovered/Resolved]
  - Neutropenia [Not Recovered/Not Resolved]
  - Infection susceptibility increased [Unknown]
  - Neutropenia [Recovered/Resolved]
  - Neutropenia [Recovered/Resolved]
  - Neutropenia [Recovered/Resolved]
  - Anaemia [Recovered/Resolved]
  - Anaemia [Recovered/Resolved]
  - Anaemia [Recovered/Resolved]
  - Pyrexia [Unknown]
  - Blood test abnormal [Not Recovered/Not Resolved]
  - Thrombocytopenia [Recovered/Resolved]
  - Pancytopenia [Recovered/Resolved]
  - Thrombocytopenia [Recovered/Resolved]
  - Petechiae [Recovered/Resolved]
  - Epistaxis [Recovered/Resolved]
  - Thrombocytopenia [Recovered/Resolved]
  - Gingival bleeding [Recovered/Resolved]
  - Thrombocytopenia [Recovered/Resolved]
  - Dysphagia [Unknown]
  - Rhinitis [Unknown]
  - Periodontitis [Unknown]
  - Anaemia [Recovered/Resolved]
  - Anaemia [Recovered/Resolved]
  - Anaemia [Recovered/Resolved]
  - Penile haemorrhage [Recovered/Resolved]
  - Anaemia [Recovered/Resolved]
  - Anaemia [Recovered/Resolved]
  - Cerebral mass effect [Fatal]
  - Anaemia [Recovered/Resolved]
  - Hypertensive crisis [Fatal]

NARRATIVE: CASE EVENT DATE: 20230909
